FAERS Safety Report 6744478-7 (Version None)
Quarter: 2010Q2

REPORT INFORMATION
  Report Type: 
  Country: None (occurrence: None)
  Receive Date: 20100527
  Receipt Date: 20100517
  Transmission Date: 20101027
  Serious: Yes (Other)
  Sender: FDA-Public Use
  Company Number: US-BRISTOL-MYERS SQUIBB COMPANY-15108590

PATIENT
  Age: 36 Year
  Sex: Male

DRUGS (4)
  1. STAVUDINE [Suspect]
     Indication: ANTIRETROVIRAL THERAPY
  2. EFAVIRENZ [Suspect]
     Indication: ANTIRETROVIRAL THERAPY
  3. NELFINAVIR [Suspect]
     Indication: ANTIRETROVIRAL THERAPY
  4. LAMIVUDINE [Suspect]
     Indication: ANTIRETROVIRAL THERAPY

REACTIONS (1)
  - PROGRESSIVE MULTIFOCAL LEUKOENCEPHALOPATHY [None]
